FAERS Safety Report 7503075-6 (Version None)
Quarter: 2011Q2

REPORT INFORMATION
  Report Type: 
  Country: None (occurrence: None)
  Receive Date: 20110518
  Receipt Date: 20110510
  Transmission Date: 20111010
  Serious: Yes (Hospitalization, Other)
  Sender: FDA-Public Use
  Company Number: 2009AC000269

PATIENT
  Age: 53 Year
  Sex: Female

DRUGS (53)
  1. LASIX [Concomitant]
  2. CRESTOR [Concomitant]
  3. PROCRIT [Concomitant]
  4. LANTUS [Concomitant]
  5. TUSSIONEX [Concomitant]
  6. ZITHROMAX [Concomitant]
  7. LEVAQUIN [Concomitant]
  8. SIMVASTATIN [Concomitant]
  9. XENICAL [Concomitant]
  10. GLUCOPHAGE [Concomitant]
  11. GLYBURIDE [Concomitant]
  12. TOPROL-XL [Concomitant]
  13. CLONIDINE [Concomitant]
  14. GEMFIBROZIL [Concomitant]
  15. AVANDIA [Concomitant]
  16. SYNTHROID [Concomitant]
  17. HYDROCHLOROTHIAZIDE [Concomitant]
  18. FERROUS SULFATE TAB [Concomitant]
  19. AMLODIPINE [Concomitant]
  20. ASCENSIA [Concomitant]
  21. PHOSLO [Concomitant]
  22. DIGOXIN [Suspect]
     Indication: CARDIAC FAILURE CONGESTIVE
     Dosage: 0.125 MG;QD;PO
     Route: 048
     Dates: start: 20050829, end: 20080818
  23. MONOPRIL [Concomitant]
  24. HYZAAR [Concomitant]
  25. METOPROLOL SUCCINATE [Concomitant]
  26. DOIVAN [Concomitant]
  27. ATORVASTATIN [Concomitant]
  28. TRICOR [Concomitant]
  29. METOPROLOL SUCCINATE [Concomitant]
  30. ASPIRIN [Concomitant]
  31. FOSINOPRIL SODIUM [Concomitant]
  32. CALCITRIOL [Concomitant]
  33. LANTUS [Concomitant]
  34. LISINOPRIL [Concomitant]
  35. LEVOTHYROXINE SODIUM [Concomitant]
  36. DRISDOL [Concomitant]
  37. DIOVAN [Concomitant]
  38. ATACAND [Concomitant]
  39. CEFDINIR [Concomitant]
  40. XALATAN [Concomitant]
  41. PROCARDIA [Concomitant]
  42. JANUVIA [Concomitant]
  43. ROCEPHIN [Concomitant]
  44. RELION [Concomitant]
  45. CALCITRIOL [Concomitant]
  46. FERROUS SULFATE TAB [Concomitant]
  47. SYNTHROID [Concomitant]
  48. DYNACIRC [Concomitant]
  49. INSULIN [Concomitant]
  50. TRILIPIX [Concomitant]
  51. CALCIUM ACETATE [Concomitant]
  52. TRAMADOL HCL [Concomitant]
  53. NORVASC [Concomitant]

REACTIONS (32)
  - LOBAR PNEUMONIA [None]
  - STRESS URINARY INCONTINENCE [None]
  - ABDOMINAL PAIN UPPER [None]
  - HYPERKALAEMIA [None]
  - HEPATITIS B ANTIBODY POSITIVE [None]
  - DIABETES MELLITUS [None]
  - ELECTROCARDIOGRAM T WAVE ABNORMAL [None]
  - IMPAIRED WORK ABILITY [None]
  - CALCINOSIS [None]
  - RENAL FAILURE CHRONIC [None]
  - ANAEMIA [None]
  - ARTHRALGIA [None]
  - DIABETIC NEUROPATHY [None]
  - NEPHRITIS [None]
  - HYPERLIPIDAEMIA [None]
  - LEFT ATRIAL HYPERTROPHY [None]
  - ECONOMIC PROBLEM [None]
  - IRON DEFICIENCY ANAEMIA [None]
  - ABDOMINAL PAIN [None]
  - RENAL FAILURE ACUTE [None]
  - INJURY [None]
  - CATARACT CORTICAL [None]
  - HYPERCHOLESTEROLAEMIA [None]
  - VISUAL ACUITY REDUCED [None]
  - PAIN [None]
  - HYPERTENSION [None]
  - HYPOTHYROIDISM [None]
  - FATIGUE [None]
  - OCCULT BLOOD POSITIVE [None]
  - FLANK PAIN [None]
  - ACIDOSIS [None]
  - CARDIAC FLUTTER [None]
